FAERS Safety Report 11151266 (Version 1)
Quarter: 2015Q2

REPORT INFORMATION
  Report Type: Spontaneous
  Country: IN (occurrence: IN)
  Receive Date: 20150601
  Receipt Date: 20150601
  Transmission Date: 20150821
  Serious: Yes (Hospitalization, Other)
  Sender: FDA-Public Use
  Company Number: IN-AUROBINDO-AUR-APL-2015-04497

PATIENT
  Age: 31 Year
  Sex: Male

DRUGS (7)
  1. DIVALPROEX SODIUM DELAYED-RELEASE [Suspect]
     Active Substance: DIVALPROEX SODIUM
     Dosage: 250 MG, TWO TIMES A DAY
     Route: 065
  2. DIVALPROEX SODIUM DELAYED-RELEASE [Suspect]
     Active Substance: DIVALPROEX SODIUM
     Indication: MANIA
     Dosage: 500 MG, TWO TIMES A DAY
     Route: 065
  3. OLANZAPINE. [Suspect]
     Active Substance: OLANZAPINE
     Dosage: 15 MG, UNK
     Route: 065
  4. DIVALPROEX SODIUM DELAYED-RELEASE [Suspect]
     Active Substance: DIVALPROEX SODIUM
     Dosage: 1500 MG, UNK
     Route: 065
  5. DIVALPROEX SODIUM DELAYED-RELEASE [Suspect]
     Active Substance: DIVALPROEX SODIUM
     Dosage: 1500 MG DIVIDED DOSES UNK
     Route: 065
  6. TOPIRAMATE TABLETS 25 MG [Suspect]
     Active Substance: TOPIRAMATE
     Indication: VASCULAR HEADACHE
     Dosage: 25 MG, TWO TIMES A DAY
     Route: 065
  7. OLANZAPINE. [Suspect]
     Active Substance: OLANZAPINE
     Indication: MANIA
     Dosage: 5 MG, TWO TIMES A DAY
     Route: 065

REACTIONS (16)
  - Ammonia increased [Recovered/Resolved]
  - Decreased activity [Recovered/Resolved]
  - Gait disturbance [Recovered/Resolved]
  - Circadian rhythm sleep disorder [Recovered/Resolved]
  - Delirium [Recovered/Resolved]
  - Confusional state [Recovered/Resolved]
  - Agitation [Recovered/Resolved]
  - Nausea [Recovered/Resolved]
  - Hyperammonaemia [Recovered/Resolved]
  - Lethargy [Recovered/Resolved]
  - Speech disorder [Recovered/Resolved]
  - Disorientation [Recovered/Resolved]
  - Headache [Recovered/Resolved]
  - Vomiting [Recovered/Resolved]
  - Psychomotor hyperactivity [Recovered/Resolved]
  - Condition aggravated [Recovered/Resolved]
